FAERS Safety Report 16864378 (Version 1)
Quarter: 2019Q3

REPORT INFORMATION
  Report Type: Spontaneous
  Country: US (occurrence: US)
  Receive Date: 20190928
  Receipt Date: 20190928
  Transmission Date: 20191005
  Serious: Yes (Hospitalization, Other)
  Sender: FDA-Public Use
  Company Number: US-ZYDUS-041231

PATIENT
  Age: 44 Year
  Sex: Male

DRUGS (2)
  1. VANCOMYCIN [Suspect]
     Active Substance: VANCOMYCIN
     Indication: ANTIBIOTIC THERAPY
     Route: 042
  2. DOXYCYCLINE. [Suspect]
     Active Substance: DOXYCYCLINE
     Indication: ANTIBIOTIC THERAPY
     Dosage: 100 MG BY MOUTH EVERY 12 HOURS
     Route: 048

REACTIONS (7)
  - Acute generalised exanthematous pustulosis [Unknown]
  - Lymph node pain [Unknown]
  - Rash erythematous [Unknown]
  - Lymphadenopathy [Unknown]
  - Leukocytosis [Unknown]
  - Pruritus [Unknown]
  - Rash morbilliform [Unknown]
